FAERS Safety Report 4807265-2 (Version None)
Quarter: 2005Q4

REPORT INFORMATION
  Report Type: 
  Country: None (occurrence: None)
  Receive Date: 20051024
  Receipt Date: 20050523
  Transmission Date: 20060501
  Serious: Yes (Disabling, Other)
  Sender: FDA-Public Use
  Company Number: PHEH2005US05839

PATIENT
  Age: 56 Year
  Sex: Female

DRUGS (3)
  1. AREDIA [Suspect]
     Indication: METASTASES TO BONE
     Dosage: 90 MG ABOUT ONCE A MONTH
     Dates: start: 20000201
  2. ZOMETA [Suspect]
     Indication: METASTASES TO BONE
     Dosage: 4 MG ABOUT ONCE A MONTH
     Dates: end: 20040301
  3. VIOXX [Concomitant]

REACTIONS (6)
  - BONE DISORDER [None]
  - FALL [None]
  - IMPAIRED HEALING [None]
  - INJURY [None]
  - JAW DISORDER [None]
  - OSTEONECROSIS [None]
